FAERS Safety Report 24832079 (Version 1)
Quarter: 2025Q1

REPORT INFORMATION
  Report Type: Report from Study
  Country: CN (occurrence: CN)
  Receive Date: 20250110
  Receipt Date: 20250110
  Transmission Date: 20250409
  Serious: Yes (Hospitalization)
  Sender: PFIZER
  Company Number: CN-PFIZER INC-PV202500002778

PATIENT
  Age: 47 Year
  Sex: Male
  Weight: 74.5 kg

DRUGS (2)
  1. ABROCITINIB [Suspect]
     Active Substance: ABROCITINIB
     Indication: Dermatitis atopic
     Dosage: 100 MG, 1X/DAY
     Route: 048
     Dates: start: 20241104, end: 20241122
  2. CEPHALOSPORIN C [Concomitant]
     Active Substance: CEPHALOSPORIN C
     Indication: Prophylaxis
     Route: 048
     Dates: start: 20241105, end: 20241112

REACTIONS (4)
  - Erythema multiforme [Recovered/Resolved]
  - Folliculitis [Recovered/Resolved]
  - Herpes simplex [Recovered/Resolved]
  - Drug eruption [Recovered/Resolved]

NARRATIVE: CASE EVENT DATE: 20241117
